FAERS Safety Report 9731878 (Version 1)
Quarter: 2013Q4

REPORT INFORMATION
  Report Type: Spontaneous
  Country: US (occurrence: None)
  Receive Date: 20131204
  Receipt Date: 20131204
  Transmission Date: 20140711
  Serious: Yes (Life-Threatening, Disabling, Other)
  Sender: FDA-Public Use
  Company Number: None

PATIENT
  Age: 75 Year
  Sex: Male
  Weight: 85.28 kg

DRUGS (9)
  1. LOSARTAN POTASSIUM [Suspect]
     Indication: HYPERTENSION
     Route: 048
     Dates: start: 20130315, end: 20131015
  2. LEVOTHYROXINE [Concomitant]
  3. CPAP MACHINE [Concomitant]
  4. CENTRUM SILVER MULTI-VIT [Concomitant]
  5. GLUCOSAMINE [Concomitant]
  6. COQ 10 [Concomitant]
  7. MAGNESIUM [Concomitant]
  8. CALCIUM [Concomitant]
  9. ASPIRIN [Concomitant]

REACTIONS (6)
  - Dizziness [None]
  - Balance disorder [None]
  - Cognitive disorder [None]
  - Stress [None]
  - Product quality issue [None]
  - Product substitution issue [None]
